FAERS Safety Report 18569237 (Version 1)
Quarter: 2020Q4

REPORT INFORMATION
  Report Type: Spontaneous
  Country: US (occurrence: US)
  Receive Date: 20201130
  Receipt Date: 20201130
  Transmission Date: 20210114
  Serious: Yes (Hospitalization)
  Sender: FDA-Public Use
  Company Number: None

PATIENT
  Age: 50 Year
  Sex: Female

DRUGS (18)
  1. CHLORDIAZEP 100MG [Concomitant]
  2. XELJANZ XR [Suspect]
     Active Substance: TOFACITINIB CITRATE
     Indication: MULTIPLE SCLEROSIS
     Route: 048
     Dates: start: 20161014
  3. TECFIDERA [Concomitant]
     Active Substance: DIMETHYL FUMARATE
  4. CLINDAMYCIN 1% [Concomitant]
     Active Substance: CLINDAMYCIN
  5. LINZESS [Concomitant]
     Active Substance: LINACLOTIDE
  6. PERMETRIN 5% [Concomitant]
  7. TOPIRAMATE. [Concomitant]
     Active Substance: TOPIRAMATE
  8. FENTANYL DIS 50 MCG/HR [Concomitant]
  9. MEDROXPR AC 150MG/ML INJ [Concomitant]
  10. LORAZEPAM 2MG TABLET [Concomitant]
     Active Substance: LORAZEPAM
  11. METHADONE 5MG TAB [Concomitant]
  12. OXYCOD / APAP [Concomitant]
  13. XTAMPZA [Concomitant]
     Active Substance: OXYCODONE
  14. AMPHET / DEXT 20MG TAB [Concomitant]
  15. IVERMECTIN 3MG TABLETS [Concomitant]
     Active Substance: IVERMECTIN
  16. DIMETHYL FUM 240MG CAP [Suspect]
     Active Substance: DIMETHYL FUMARATE
     Indication: MULTIPLE SCLEROSIS
     Route: 048
  17. NARCAN SPR [Concomitant]
  18. DESVENIAFAX 100MG [Concomitant]

REACTIONS (4)
  - Therapy interrupted [None]
  - Condition aggravated [None]
  - Brain neoplasm [None]
  - Sleep disorder [None]

NARRATIVE: CASE EVENT DATE: 20200101
